FAERS Safety Report 4645863-X (Version None)
Quarter: 2005Q2

REPORT INFORMATION
  Report Type: 
  Country: None (occurrence: None)
  Receive Date: 20050425
  Receipt Date: 20050411
  Transmission Date: 20051028
  Serious: Yes (Hospitalization, Other)
  Sender: FDA-Public Use
  Company Number: 2005BI004720

PATIENT
  Sex: Female
  Weight: 181.4388 kg

DRUGS (1)
  1. AVONEX [Suspect]
     Indication: MULTIPLE SCLEROSIS
     Dosage: 30 UG; QW; IM
     Route: 030
     Dates: start: 20010406

REACTIONS (2)
  - CARDIAC FAILURE CONGESTIVE [None]
  - LOBAR PNEUMONIA [None]
